FAERS Safety Report 7294905-4 (Version None)
Quarter: 2011Q1

REPORT INFORMATION
  Report Type: 
  Country: None (occurrence: None)
  Receive Date: 20110216
  Receipt Date: 20040210
  Transmission Date: 20110831
  Serious: Yes (Hospitalization, Other)
  Sender: FDA-Public Use
  Company Number: US-JNJFOC-20100904281

PATIENT
  Sex: Male
  Weight: 104.33 kg

DRUGS (1)
  1. PROPULSID [Suspect]
     Indication: GASTRIC DISORDER
     Route: 048
     Dates: start: 19950101, end: 19980101

REACTIONS (4)
  - DYSPNOEA [None]
  - LIVER DISORDER [None]
  - LOSS OF CONSCIOUSNESS [None]
  - NERVOUSNESS [None]
